FAERS Safety Report 17717961 (Version 1)
Quarter: 2020Q2

REPORT INFORMATION
  Report Type: Spontaneous
  Country: US (occurrence: US)
  Receive Date: 20200428
  Receipt Date: 20200428
  Transmission Date: 20200714
  Serious: Yes (Other)
  Sender: FDA-Public Use
  Company Number: US-MEDEXUS PHARMA, INC.-2020MED00070

PATIENT
  Age: 61 Year
  Sex: Male
  Weight: 99.77 kg

DRUGS (6)
  1. IXINITY [Suspect]
     Active Substance: COAGULATION FACTOR IX RECOMBINANT HUMAN
     Dosage: 43302 IU, 3X/MONTH ^BALLPARK AVERAGE,^ A WEEK TO 10 DAYS APART, ^USES AND ADJUSTS ACCORDING TO HOW M
     Route: 042
     Dates: start: 20200218
  2. UNSPECIED MEDICATIONS [Concomitant]
  3. UNSPECIFIED NUTRITIONAL SUPPLEMENTS [Concomitant]
  4. IXINITY [Suspect]
     Active Substance: COAGULATION FACTOR IX RECOMBINANT HUMAN
     Indication: FACTOR IX DEFICIENCY
     Dosage: 6000 IU ^AND IT CAN VARY UP OR DOWN A LITTLE BIT^, 3X/MONTH ^BALLPARK AVERAGE,^ A WEEK TO 10 DAYS AP
     Route: 042
     Dates: start: 201712
  5. IXINITY [Suspect]
     Active Substance: COAGULATION FACTOR IX RECOMBINANT HUMAN
     Indication: HAEMORRHAGE PROPHYLAXIS
     Dosage: 24744 IU, 3X/MONTH ^BALLPARK AVERAGE,^ A WEEK TO 10 DAYS APART, ^USES AND ADJUSTS ACCORDING TO HOW M
     Route: 042
     Dates: end: 20200218
  6. SILYMARIN [Concomitant]
     Active Substance: DIETARY SUPPLEMENT\HERBALS\MILK THISTLE

REACTIONS (6)
  - Hepatic cancer [Not Recovered/Not Resolved]
  - Road traffic accident [Recovered/Resolved]
  - Aphasia [Not Recovered/Not Resolved]
  - Therapeutic product effect incomplete [Not Recovered/Not Resolved]
  - Brain operation [Recovered/Resolved]
  - Brain oedema [Unknown]

NARRATIVE: CASE EVENT DATE: 201804
